FAERS Safety Report 17589933 (Version 1)
Quarter: 2020Q1

REPORT INFORMATION
  Report Type: Spontaneous
  Country: FR (occurrence: FR)
  Receive Date: 20200327
  Receipt Date: 20200327
  Transmission Date: 20200409
  Serious: Yes (Hospitalization, Other)
  Sender: FDA-Public Use
  Company Number: NVSC2020FR083856

PATIENT
  Sex: Female

DRUGS (2)
  1. TAFINLAR [Suspect]
     Active Substance: DABRAFENIB MESYLATE
     Indication: ADENOCARCINOMA
     Dosage: UNK (PER DAY)
     Route: 065
     Dates: start: 201910, end: 202003
  2. MEKINIST [Suspect]
     Active Substance: TRAMETINIB DIMETHYL SULFOXIDE
     Indication: ADENOCARCINOMA
     Dosage: UNK (PER DAY)
     Route: 065
     Dates: start: 201910, end: 202003

REACTIONS (3)
  - Pyrexia [Not Recovered/Not Resolved]
  - Off label use [Unknown]
  - Interstitial lung disease [Unknown]
